FAERS Safety Report 15120382 (Version 1)
Quarter: 2018Q3

REPORT INFORMATION
  Report Type: Spontaneous
  Country: US (occurrence: US)
  Receive Date: 20180709
  Receipt Date: 20180709
  Transmission Date: 20181010
  Serious: Yes (Hospitalization)
  Sender: FDA-Public Use
  Company Number: US-ROCHE-2151431

PATIENT
  Age: 65 Year
  Sex: Male

DRUGS (2)
  1. ERIVEDGE [Suspect]
     Active Substance: VISMODEGIB
     Indication: SKIN CANCER
     Dosage: ONGOING:CURRENT
     Route: 048
     Dates: start: 20180207
  2. ADVIL [Suspect]
     Active Substance: IBUPROFEN
     Indication: PRODUCT USED FOR UNKNOWN INDICATION
     Route: 065

REACTIONS (1)
  - Gastric ulcer haemorrhage [Unknown]
